FAERS Safety Report 14731849 (Version 1)
Quarter: 2018Q2

REPORT INFORMATION
  Report Type: Spontaneous
  Country: US (occurrence: US)
  Receive Date: 20180408
  Receipt Date: 20180408
  Transmission Date: 20180711
  Serious: No
  Sender: FDA-Public Use
  Company Number: US-JNJFOC-20180338583

PATIENT

DRUGS (1)
  1. NIZORAL A-D [Suspect]
     Active Substance: KETOCONAZOLE
     Indication: ALOPECIA
     Route: 061

REACTIONS (1)
  - Intentional product misuse [Unknown]
